FAERS Safety Report 21516446 (Version 2)
Quarter: 2022Q4

REPORT INFORMATION
  Report Type: Spontaneous
  Country: US (occurrence: US)
  Receive Date: 20221027
  Receipt Date: 20221116
  Transmission Date: 20230112
  Serious: Yes (Life-Threatening, Hospitalization)
  Sender: FDA-Public Use
  Company Number: US-TEVA-2022-US-2820762

PATIENT
  Age: 48 Year
  Sex: Male

DRUGS (3)
  1. AMIODARONE [Suspect]
     Active Substance: AMIODARONE
     Indication: Ventricular fibrillation
     Route: 065
  2. AMIODARONE [Suspect]
     Active Substance: AMIODARONE
     Indication: Cardiac arrest
  3. POTASSIUM [Suspect]
     Active Substance: POTASSIUM
     Indication: Cardiac arrest
     Route: 065

REACTIONS (2)
  - Hyperthyroidism [Unknown]
  - Drug ineffective [Unknown]
